FAERS Safety Report 8049227-0 (Version None)
Quarter: 2012Q1

REPORT INFORMATION
  Report Type: 
  Country: None (occurrence: None)
  Receive Date: 20120117
  Receipt Date: 20120116
  Transmission Date: 20120608
  Serious: Yes (Hospitalization)
  Sender: FDA-Public Use
  Company Number: IT-ROCHE-1014804

PATIENT

DRUGS (2)
  1. PACLITAXEL [Concomitant]
     Dates: start: 20100624
  2. AVASTIN [Suspect]
     Indication: BREAST CANCER
     Route: 065
     Dates: start: 20101101

REACTIONS (2)
  - CARDIAC FAILURE [None]
  - ACUTE PULMONARY OEDEMA [None]
